FAERS Safety Report 6977191-1 (Version None)
Quarter: 2010Q3

REPORT INFORMATION
  Report Type: 
  Country: None (occurrence: None)
  Receive Date: 20100910
  Receipt Date: 20100831
  Transmission Date: 20110219
  Serious: Yes (Other)
  Sender: FDA-Public Use
  Company Number: US-PFIZER INC-2010110489

PATIENT
  Sex: Female
  Weight: 79.365 kg

DRUGS (2)
  1. LYRICA [Suspect]
     Indication: BONE PAIN
     Dosage: 75 MG, 2X/DAY
     Route: 048
     Dates: start: 20090101, end: 20100801
  2. PERCOCET [Concomitant]
     Indication: BONE PAIN
     Dosage: UNK

REACTIONS (2)
  - ANAEMIA [None]
  - OEDEMA PERIPHERAL [None]
